FAERS Safety Report 8932055 (Version 1)
Quarter: 2012Q4

REPORT INFORMATION
  Report Type: 
  Country: DE (occurrence: DE)
  Receive Date: 20121128
  Receipt Date: 20121128
  Transmission Date: 20130627
  Serious: Yes (Hospitalization, Other)
  Sender: FDA-Public Use
  Company Number: DE-BAYER-2012-084424

PATIENT
  Age: 51 Year
  Sex: Female
  Weight: 48 kg

DRUGS (1)
  1. BETAFERON [Suspect]
     Indication: RELAPSING-REMITTING MULTIPLE SCLEROSIS
     Dosage: 250 mg, UNK
     Route: 058
     Dates: start: 20070725

REACTIONS (6)
  - Septic shock [Recovered/Resolved]
  - Pneumonia streptococcal [Recovered/Resolved]
  - Pancreatitis chronic [None]
  - Explorative laparotomy [None]
  - Normochromic normocytic anaemia [None]
  - Candida test positive [None]
